FAERS Safety Report 23968701 (Version 2)
Quarter: 2025Q4

REPORT INFORMATION
  Report Type: Spontaneous
  Country: BR (occurrence: BR)
  Receive Date: 20240612
  Receipt Date: 20251110
  Transmission Date: 20260117
  Serious: Yes (Death, Hospitalization, Other)
  Sender: GENMAB
  Company Number: BR-ABBVIE-5726201

PATIENT
  Age: 60 Year
  Sex: Female

DRUGS (4)
  1. EPCORITAMAB [Suspect]
     Active Substance: EPCORITAMAB
     Indication: Diffuse large B-cell lymphoma
     Dosage: UNK, FIRST DOSE (D1C1)
     Route: 058
     Dates: start: 20240412, end: 20240412
  2. EPCORITAMAB [Suspect]
     Active Substance: EPCORITAMAB
     Dosage: UNK, SECOND DOSE (D2C1)
     Route: 058
     Dates: start: 20240415, end: 20240415
  3. EPCORITAMAB [Suspect]
     Active Substance: EPCORITAMAB
     Dosage: 48 MILLIGRAM (DAY 8)
     Route: 058
  4. TOCILIZUMAB [Concomitant]
     Active Substance: TOCILIZUMAB
     Indication: Product used for unknown indication
     Dosage: UNK
     Route: 065

REACTIONS (6)
  - Diffuse large B-cell lymphoma [Fatal]
  - Sepsis [Unknown]
  - Cytokine release syndrome [Unknown]
  - Hypotension [Unknown]
  - Cytokine release syndrome [Unknown]
  - Off label use [Unknown]

NARRATIVE: CASE EVENT DATE: 20240101
